FAERS Safety Report 24574750 (Version 2)
Quarter: 2024Q4

REPORT INFORMATION
  Report Type: Spontaneous
  Country: PT (occurrence: PT)
  Receive Date: 20241104
  Receipt Date: 20241106
  Transmission Date: 20250114
  Serious: Yes (Other)
  Sender: CELLTRION
  Company Number: None

PATIENT

DRUGS (1)
  1. YUFLYMA [Suspect]
     Active Substance: ADALIMUMAB-AATY
     Indication: Rheumatoid arthritis
     Dosage: UNK
     Route: 058
     Dates: start: 20240131, end: 20240426

REACTIONS (4)
  - Bone pain [Not Recovered/Not Resolved]
  - Periodontitis [Not Recovered/Not Resolved]
  - Rash [Not Recovered/Not Resolved]
  - Product substitution [Not Recovered/Not Resolved]

NARRATIVE: CASE EVENT DATE: 20240131
